FAERS Safety Report 7298339-8 (Version None)
Quarter: 2011Q1

REPORT INFORMATION
  Report Type: 
  Country: None (occurrence: None)
  Receive Date: 20110204
  Receipt Date: 20110125
  Transmission Date: 20110831
  Serious: Yes (Other)
  Sender: FDA-Public Use
  Company Number: PD 138

PATIENT
  Age: 8 Year
  Sex: Female
  Weight: 35 kg

DRUGS (2)
  1. LEVETIRACETAM [Suspect]
     Indication: EPILEPSY
     Dosage: 1,500 MG / DAY
  2. LAMOTRIGINE [Concomitant]

REACTIONS (6)
  - CONDITION AGGRAVATED [None]
  - ENCEPHALOPATHY [None]
  - MYOCLONUS [None]
  - GAIT DISTURBANCE [None]
  - POSTURE ABNORMAL [None]
  - CONVULSION [None]
